FAERS Safety Report 9973111 (Version 1)
Quarter: 2014Q1

REPORT INFORMATION
  Report Type: Spontaneous
  Country: BE (occurrence: BE)
  Receive Date: 20140306
  Receipt Date: 20140306
  Transmission Date: 20141002
  Serious: Yes (Hospitalization)
  Sender: FDA-Public Use
  Company Number: BE-JNJFOC-20140301124

PATIENT
  Age: 43 Year
  Sex: Female

DRUGS (4)
  1. REMICADE [Suspect]
     Indication: ANKYLOSING SPONDYLITIS
     Route: 042
  2. REMICADE [Suspect]
     Indication: ANKYLOSING SPONDYLITIS
     Route: 042
     Dates: start: 20131125, end: 201402
  3. ARCOXIA [Suspect]
     Indication: ANKYLOSING SPONDYLITIS
     Dosage: TOTAL DAILY DOSE WAS 90 MG
     Route: 065
  4. PANTOMED [Concomitant]
     Route: 065

REACTIONS (8)
  - Bone marrow disorder [Unknown]
  - Sjogren^s syndrome [Unknown]
  - Leukopenia [Unknown]
  - Hypergammaglobulinaemia [Unknown]
  - Influenza like illness [Unknown]
  - Arthralgia [Unknown]
  - Alopecia [Unknown]
  - Rash erythematous [Unknown]
